FAERS Safety Report 5302037-7 (Version None)
Quarter: 2007Q2

REPORT INFORMATION
  Report Type: 
  Country: None (occurrence: None)
  Receive Date: 20070419
  Receipt Date: 20070416
  Transmission Date: 20071010
  Serious: Yes (Other)
  Sender: FDA-Public Use
  Company Number: JP-JNJFOC-20061006792

PATIENT
  Sex: Female
  Weight: 50 kg

DRUGS (15)
  1. PLACEBO [Suspect]
     Indication: COLITIS ULCERATIVE
     Route: 042
  2. PENTASA [Suspect]
     Indication: COLITIS ULCERATIVE
     Dosage: STARTED BEFORE 16-AUG-2006
     Route: 048
  3. PREDONINE [Concomitant]
     Route: 048
  4. PREDONINE [Concomitant]
     Dosage: STARTED BEFORE 08-NOV-2006
     Route: 048
  5. PREDONINE [Concomitant]
     Dosage: STARTED BEFORE 01-NOV-2006
     Route: 048
  6. PREDONINE [Concomitant]
     Indication: COLITIS ULCERATIVE
     Dosage: STARTED BEFORE 16-AUG-2006
     Route: 048
  7. LAC B [Concomitant]
     Indication: COLITIS ULCERATIVE
     Dosage: STARTED BEFORE 16-AUG-2006
     Route: 048
  8. GASTROM [Concomitant]
     Indication: GASTROINTESTINAL DISORDER THERAPY
     Dosage: STARTED BEFORE 16-AUG-2006
     Route: 048
  9. TAKEPRON OD [Concomitant]
     Indication: GASTROINTESTINAL DISORDER THERAPY
     Dosage: STARTED BEFORE 16-AUG-2006
     Route: 048
  10. ACTONEL [Concomitant]
     Indication: OSTEOPOROSIS
     Dosage: STARTED BEFORE 16-AUG-2006
     Route: 048
  11. ALFAROL [Concomitant]
     Indication: OSTEOPOROSIS
     Dosage: STARTED BEFORE 16-AUG-2006
     Route: 048
  12. ISCOTIN [Concomitant]
     Indication: ANTIBIOTIC PROPHYLAXIS
     Dosage: STARTED BEFORE 13-SEP-2006
     Route: 048
  13. KETOPROFEN [Concomitant]
     Indication: ARTHRALGIA
     Route: 061
  14. KETOPROFEN [Concomitant]
     Indication: MYALGIA
     Route: 061
  15. KETOPROFEN [Concomitant]
     Indication: OSTEOPOROSIS
     Dosage: STARTED BEFORE 16-AUG-2006, ADEQUATE DOSE
     Route: 061

REACTIONS (4)
  - ARTHRALGIA [None]
  - MUSCULAR WEAKNESS [None]
  - MYALGIA [None]
  - RASH [None]
